FAERS Safety Report 10414978 (Version 1)
Quarter: 2014Q2

REPORT INFORMATION
  Report Type: Spontaneous
  Country: US (occurrence: None)
  Receive Date: 20140604
  Receipt Date: 20140604
  Transmission Date: 20141212
  Serious: No
  Sender: FDA-Public Use
  Company Number: 163-POMAL-14032780

PATIENT
  Age: 61 Year
  Sex: Female
  Weight: 88.91 kg

DRUGS (3)
  1. POMALYST (POMALIDOMIDE) (4 MILLIGRAM, CAPSULES) [Suspect]
     Indication: PLASMA CELL MYELOMA
     Dosage: 21 IN 28 D
     Route: 048
     Dates: start: 20140219
  2. ECOTRIN (ACETYLSALICYLIC ACID) [Concomitant]
  3. PANTOPRAZOLE [Concomitant]

REACTIONS (6)
  - Eye swelling [None]
  - Lip swelling [None]
  - Back pain [None]
  - Confusional state [None]
  - Fatigue [None]
  - Rash [None]
